FAERS Safety Report 13892122 (Version 1)
Quarter: 2017Q3

REPORT INFORMATION
  Report Type: Spontaneous
  Country: US (occurrence: US)
  Receive Date: 20170822
  Receipt Date: 20170822
  Transmission Date: 20171127
  Serious: No
  Sender: FDA-Public Use
  Company Number: GXBR2017US002001

PATIENT
  Age: 75 Year
  Sex: Female
  Weight: 86 kg

DRUGS (1)
  1. CLINDAMYCIN. [Suspect]
     Active Substance: CLINDAMYCIN
     Indication: DERMAL CYST
     Dosage: 1 DF, BID
     Route: 065
     Dates: start: 20170418

REACTIONS (4)
  - Impaired healing [Not Recovered/Not Resolved]
  - Drug ineffective [Unknown]
  - Application site discharge [Not Recovered/Not Resolved]
  - Application site swelling [Unknown]

NARRATIVE: CASE EVENT DATE: 201704
